FAERS Safety Report 23693239 (Version 1)
Quarter: 2024Q2

REPORT INFORMATION
  Report Type: Other
  Country: DE (occurrence: None)
  Receive Date: 20240401
  Receipt Date: 20240401
  Transmission Date: 20240716
  Serious: Yes (Death, Other)
  Sender: FDA-Public Use
  Company Number: DE-ROCHE-3532694

PATIENT

DRUGS (5)
  1. RITUXIMAB [Suspect]
     Active Substance: RITUXIMAB
     Indication: Diffuse large B-cell lymphoma
     Route: 042
  2. METHOTREXATE [Suspect]
     Active Substance: METHOTREXATE
     Indication: Diffuse large B-cell lymphoma
     Dosage: 3.5 G/M2 (DAY 1)
     Route: 042
  3. CYTARABINE [Suspect]
     Active Substance: CYTARABINE
     Indication: Diffuse large B-cell lymphoma
     Dosage: 2 G/M2 (DAYS 2, 3)
     Route: 042
  4. BUSULFAN [Suspect]
     Active Substance: BUSULFAN
     Indication: Diffuse large B-cell lymphoma
     Dosage: (DAYS -7 AND -6)
     Route: 042
  5. THIOTEPA [Suspect]
     Active Substance: THIOTEPA
     Indication: Diffuse large B-cell lymphoma
     Dosage: (DAYS -5 AND -4)
     Route: 042

REACTIONS (46)
  - Sepsis [Fatal]
  - Pneumonia [Fatal]
  - Cardiac disorder [Fatal]
  - Nervous system disorder [Fatal]
  - Ill-defined disorder [Fatal]
  - Injury [Fatal]
  - Alanine aminotransferase increased [Unknown]
  - Aspartate aminotransferase increased [Unknown]
  - Blood bilirubin increased [Unknown]
  - Blood creatinine increased [Unknown]
  - C-reactive protein increased [Unknown]
  - Gamma-glutamyltransferase increased [Unknown]
  - Neutrophil count decreased [Unknown]
  - White blood cell count decreased [Unknown]
  - Hyperglycaemia [Unknown]
  - Hyperkalaemia [Unknown]
  - Hypokalaemia [Unknown]
  - Hyponatraemia [Unknown]
  - Hypophosphataemia [Unknown]
  - Stomatitis [Unknown]
  - Paraesthesia [Unknown]
  - Somnolence [Unknown]
  - Syncope [Unknown]
  - Confusional state [Unknown]
  - Delirium [Unknown]
  - Hypertension [Unknown]
  - Hypotension [Unknown]
  - Hypoxia [Unknown]
  - Device related infection [Unknown]
  - Mucosal infection [Unknown]
  - Neutropenic sepsis [Unknown]
  - Septic shock [Unknown]
  - Urinary tract infection [Unknown]
  - Anaemia [Unknown]
  - Febrile neutropenia [Unknown]
  - Leukocytosis [Unknown]
  - Thrombocytopenia [Unknown]
  - Muscular weakness [Unknown]
  - Acute kidney injury [Unknown]
  - Chronic kidney disease [Unknown]
  - Hepatobiliary disease [Unknown]
  - Fatigue [Unknown]
  - Pain [Unknown]
  - Lymphocyte count decreased [Unknown]
  - Nausea [Unknown]
  - Diarrhoea [Unknown]
